FAERS Safety Report 7389605-6 (Version None)
Quarter: 2011Q2

REPORT INFORMATION
  Report Type: 
  Country: None (occurrence: None)
  Receive Date: 20110401
  Receipt Date: 20110323
  Transmission Date: 20111010
  Serious: Yes (Other)
  Sender: FDA-Public Use
  Company Number: US-ASTRAZENECA-2010SE59325

PATIENT
  Age: 80 Year
  Sex: Female

DRUGS (1)
  1. CRESTOR [Suspect]
     Route: 048

REACTIONS (6)
  - LIMB DISCOMFORT [None]
  - FALL [None]
  - PAIN IN EXTREMITY [None]
  - MYOCARDIAL INFARCTION [None]
  - MUSCULOSKELETAL DISCOMFORT [None]
  - DRUG DOSE OMISSION [None]
